FAERS Safety Report 6888330-5 (Version None)
Quarter: 2010Q3

REPORT INFORMATION
  Report Type: 
  Country: None (occurrence: None)
  Receive Date: 20100730
  Receipt Date: 20100629
  Transmission Date: 20110219
  Serious: No
  Sender: FDA-Public Use
  Company Number: US-BAYER-201017638BCC

PATIENT
  Age: 78 Year
  Sex: Female

DRUGS (7)
  1. ALEVE (CAPLET) [Suspect]
     Indication: PAIN IN EXTREMITY
     Dosage: TOTAL DAILY DOSE: 440 MG  UNIT DOSE: 220 MG
     Route: 048
  2. CENTRUM VITAMIN [Concomitant]
     Route: 065
  3. LOVAZA [Concomitant]
     Route: 065
  4. VITAMIN B [Concomitant]
     Route: 065
  5. ASCORBIC ACID [Concomitant]
     Route: 065
  6. CALCIUM [Concomitant]
     Route: 065
  7. ECNO [Concomitant]
     Route: 065

REACTIONS (1)
  - PAIN IN EXTREMITY [None]
